FAERS Safety Report 7407863-6 (Version None)
Quarter: 2011Q2

REPORT INFORMATION
  Report Type: 
  Country: None (occurrence: None)
  Receive Date: 20110406
  Receipt Date: 20110406
  Transmission Date: 20111010
  Serious: Yes (Life-Threatening)
  Sender: FDA-Public Use
  Company Number: None

PATIENT
  Sex: Female
  Weight: 54.8852 kg

DRUGS (2)
  1. ZONISAMIDE [Suspect]
     Indication: EPILEPSY
     Dosage: 4 CAP P.O. BID
     Route: 048
     Dates: start: 20110131, end: 20110301
  2. ZONISAMIDE [Suspect]
     Indication: EPILEPSY
     Dosage: 4 CAP P.O. BID
     Route: 048
     Dates: start: 20060509, end: 20070111

REACTIONS (3)
  - DRUG EFFECT DECREASED [None]
  - PRODUCT SUBSTITUTION ISSUE [None]
  - GRAND MAL CONVULSION [None]
